FAERS Safety Report 7120218-7 (Version None)
Quarter: 2010Q4

REPORT INFORMATION
  Report Type: 
  Country: None (occurrence: None)
  Receive Date: 20101123
  Receipt Date: 20101116
  Transmission Date: 20110411
  Serious: Yes (Other)
  Sender: FDA-Public Use
  Company Number: US-AMGEN-USASP2010005391

PATIENT

DRUGS (5)
  1. NPLATE [Suspect]
     Indication: IDIOPATHIC THROMBOCYTOPENIC PURPURA
     Dates: start: 20101022
  2. KEPPRA [Concomitant]
     Dosage: 250 MG, QD
     Route: 048
  3. LISINOPRIL [Concomitant]
     Dosage: 2.6 MG, QD
     Route: 048
  4. LIPITOR [Concomitant]
     Dosage: 10 MG, QD
     Route: 048
  5. ATENOLOL [Concomitant]
     Dosage: 25 MG, QD
     Route: 048

REACTIONS (6)
  - ASTHENIA [None]
  - CONTUSION [None]
  - FATIGUE [None]
  - MUSCULAR WEAKNESS [None]
  - PALPITATIONS [None]
  - PLATELET COUNT DECREASED [None]
